FAERS Safety Report 8067610-4 (Version None)
Quarter: 2012Q1

REPORT INFORMATION
  Report Type: 
  Country: None (occurrence: None)
  Receive Date: 20120124
  Receipt Date: 20120116
  Transmission Date: 20120608
  Serious: Yes (Hospitalization)
  Sender: FDA-Public Use
  Company Number: US-US-EMD SERONO, INC.-7107235

PATIENT
  Sex: Female

DRUGS (2)
  1. SEIZURE MEDICATION [Concomitant]
     Indication: CONVULSION
  2. SAIZEN [Suspect]
     Indication: GROWTH HORMONE DEFICIENCY
     Dates: start: 20111014, end: 20111203

REACTIONS (2)
  - HEPATOMEGALY [None]
  - INSOMNIA [None]
